FAERS Safety Report 8266318-X (Version None)
Quarter: 2012Q1

REPORT INFORMATION
  Report Type: 
  Country: None (occurrence: None)
  Receive Date: 20120327
  Receipt Date: 20090918
  Transmission Date: 20120608
  Serious: Yes (Other)
  Sender: FDA-Public Use
  Company Number: PHEH2009US11289

PATIENT
  Sex: Female

DRUGS (1)
  1. GLEEVEC [Suspect]
     Indication: CHRONIC MYELOID LEUKAEMIA
     Dosage: 400 MG,     800 MG DAILY, ORAL
     Route: 048

REACTIONS (3)
  - DRUG INEFFECTIVE [None]
  - HEPATIC ENZYME INCREASED [None]
  - HEPATITIS [None]
